FAERS Safety Report 14890410 (Version 1)
Quarter: 2018Q2

REPORT INFORMATION
  Report Type: Report from Study
  Country: CN (occurrence: CN)
  Receive Date: 20180514
  Receipt Date: 20180514
  Transmission Date: 20180711
  Serious: Yes (Death, Other)
  Sender: FDA-Public Use
  Company Number: CN-MYLANLABS-2018M1031317

PATIENT
  Age: 47 Year
  Sex: Female

DRUGS (10)
  1. METHOTREXATE. [Suspect]
     Active Substance: METHOTREXATE
     Indication: PROPHYLAXIS AGAINST GRAFT VERSUS HOST DISEASE
     Dosage: 15MG/M2 ON DAY +1
     Route: 065
  2. CARMUSTINE [Suspect]
     Active Substance: CARMUSTINE
     Indication: BONE MARROW CONDITIONING REGIMEN
     Dosage: ON DAY -5
     Route: 065
  3. THYMOGLOBULINE [Suspect]
     Active Substance: LAPINE T-LYMPHOCYTE IMMUNE GLOBULIN
     Indication: BONE MARROW CONDITIONING REGIMEN
     Dosage: FROM DAY -5 TO -2
     Route: 065
  4. MYCOPHENOLATE MOFETIL. [Suspect]
     Active Substance: MYCOPHENOLATE MOFETIL
     Indication: PROPHYLAXIS AGAINST GRAFT VERSUS HOST DISEASE
     Dosage: FROM DAY +9 ONWARDS
     Route: 048
  5. BUSULFAN. [Suspect]
     Active Substance: BUSULFAN
     Indication: BONE MARROW CONDITIONING REGIMEN
     Dosage: FROM DAY -10 TO DAY -8
     Route: 042
  6. CYCLOPHOSPHAMIDE. [Suspect]
     Active Substance: CYCLOPHOSPHAMIDE
     Indication: BONE MARROW CONDITIONING REGIMEN
     Dosage: ON DAY -4 AND -3
     Route: 065
  7. CYCLOSPORIN [Suspect]
     Active Substance: CYCLOSPORINE
     Route: 048
  8. METHOTREXATE. [Suspect]
     Active Substance: METHOTREXATE
     Dosage: 10MG/M2 ON DAY +3, +6 AND +11
     Route: 065
  9. CYCLOSPORIN [Suspect]
     Active Substance: CYCLOSPORINE
     Indication: PROPHYLAXIS AGAINST GRAFT VERSUS HOST DISEASE
     Dosage: FROM DAY +9; CONCENTRATION ADJUSTED TO 180-200NG/ML
     Route: 042
  10. CYTARABINE. [Suspect]
     Active Substance: CYTARABINE
     Indication: BONE MARROW CONDITIONING REGIMEN
     Dosage: 4G/M2/DAY ON DAY -7 AND -6
     Route: 065

REACTIONS (1)
  - Septic shock [Fatal]
